FAERS Safety Report 6250930-3 (Version None)
Quarter: 2009Q2

REPORT INFORMATION
  Report Type: 
  Country: None (occurrence: None)
  Receive Date: 20090630
  Receipt Date: 20090204
  Transmission Date: 20091009
  Serious: No
  Sender: FDA-Public Use
  Company Number: US-ABBOTT-09P-163-0501884-00

PATIENT
  Sex: Male

DRUGS (3)
  1. ZEMPLAR [Suspect]
     Indication: HYPERPARATHYROIDISM
     Dates: start: 20081201, end: 20090126
  2. ZEMPLAR [Suspect]
     Dates: start: 20081001, end: 20081201
  3. ZEMPLAR [Suspect]
     Dates: start: 20090126

REACTIONS (1)
  - PAIN IN EXTREMITY [None]
